FAERS Safety Report 19426686 (Version 2)
Quarter: 2021Q3

REPORT INFORMATION
  Report Type: Spontaneous
  Country: DE (occurrence: DE)
  Receive Date: 20210617
  Receipt Date: 20210701
  Transmission Date: 20211014
  Serious: Yes (Life-Threatening)
  Sender: FDA-Public Use
  Company Number: DE-CELLTRION INC.-2021DE007989

PATIENT

DRUGS (16)
  1. BICNU [Suspect]
     Active Substance: CARMUSTINE
     Indication: DIFFUSE LARGE B-CELL LYMPHOMA
     Dosage: 400 MG/M2 AT 2 CYCLES (DAY 6)
  2. RITUXIMAB (UNKNOWN) [Suspect]
     Active Substance: RITUXIMAB
     Dosage: 1400 MG ABS AT 2 CYCLES (DAY 1) ? R?ARAC/TT
     Route: 058
  3. VINCRISTIN [Suspect]
     Active Substance: VINCRISTINE
     Indication: DIFFUSE LARGE B-CELL LYMPHOMA
     Dosage: 2 / 1 MG ABS (DAY 1)
     Route: 042
  4. PREDNISONE. [Suspect]
     Active Substance: PREDNISONE
     Indication: DIFFUSE LARGE B-CELL LYMPHOMA
     Dosage: 100 MG ABS (DAYS 1?5)
     Route: 042
  5. METHOTREXATE. [Suspect]
     Active Substance: METHOTREXATE
     Indication: DIFFUSE LARGE B-CELL LYMPHOMA
     Dosage: 4 G/M2 AT 4 CYCLES
  6. THIOTEPA. [Suspect]
     Active Substance: THIOTEPA
     Indication: DIFFUSE LARGE B-CELL LYMPHOMA
     Dosage: 40MG/M2  AT 2 CYCLES (DAY ^2)
  7. THIOTEPA. [Suspect]
     Active Substance: THIOTEPA
     Dosage: 2 X 5MG/M2 AT 2 CYCLES (DAY 5/4)
  8. ACICLOVIR [Suspect]
     Active Substance: ACYCLOVIR
     Indication: PROPHYLAXIS
     Dosage: 800 MG, 2X/DAY
  9. RITUXIMAB (UNKNOWN) [Suspect]
     Active Substance: RITUXIMAB
     Indication: CENTRAL NERVOUS SYSTEM LYMPHOMA
     Dosage: 375 MG/M2/1400 MG ABS AT 4 CYCLES (DAY 0, IV/SC))? R?MTX
  10. RITUXIMAB (UNKNOWN) [Suspect]
     Active Substance: RITUXIMAB
     Dosage: 1400 MG ABS AT 2 CYCLES (DAY 7) ? R?HD?BCNU/TT
     Route: 058
  11. CYTARABINE. [Suspect]
     Active Substance: CYTARABINE
     Indication: DIFFUSE LARGE B-CELL LYMPHOMA
     Dosage: 4 G/M2 AT 2 CYCLES (DAY1?^2)
  12. RITUXIMAB (UNKNOWN) [Suspect]
     Active Substance: RITUXIMAB
     Indication: DIFFUSE LARGE B-CELL LYMPHOMA
     Dosage: 375 MG/M2/1400 MG ABS AT 4 CYCLES (DAY 1, IV/SC)) ? R?CHOP
  13. CYCLOPHOSPHAMIDE. [Suspect]
     Active Substance: CYCLOPHOSPHAMIDE
     Indication: DIFFUSE LARGE B-CELL LYMPHOMA
     Dosage: 750 MG/M2 (DAY 1)
     Route: 042
  14. DOXORUBICIN [Suspect]
     Active Substance: DOXORUBICIN
     Dosage: 50 MG/M2 (DAY 1)
     Route: 042
  15. COTRIMOXAZOLE [Suspect]
     Active Substance: SULFAMETHOXAZOLE\TRIMETHOPRIM
  16. PENTACARINAT [Suspect]
     Active Substance: PENTAMIDINE ISETHIONATE
     Indication: PROPHYLAXIS

REACTIONS (1)
  - Haematotoxicity [Unknown]
